FAERS Safety Report 23515286 (Version 1)
Quarter: 2024Q1

REPORT INFORMATION
  Report Type: Spontaneous
  Country: AT (occurrence: AT)
  Receive Date: 20240213
  Receipt Date: 20240213
  Transmission Date: 20240409
  Serious: Yes (Hospitalization, Other)
  Sender: FDA-Public Use
  Company Number: AT-CELLTRION INC.-2024AT002972

PATIENT

DRUGS (4)
  1. RITUXIMAB [Suspect]
     Active Substance: RITUXIMAB
     Indication: Mantle cell lymphoma stage IV
     Dosage: AFTER 4TH CYCLE, (ADDITIONAL INFORMATION ON DRUG (FREE TEXT): R-BAC)
     Dates: start: 20190416, end: 201908
  2. RITUXIMAB [Suspect]
     Active Substance: RITUXIMAB
     Dosage: UNK
     Dates: start: 201901, end: 201903
  3. BENDAMUSTINE [Suspect]
     Active Substance: BENDAMUSTINE
     Indication: Mantle cell lymphoma stage IV
     Dosage: AFTER 4TH CYCLE, (ADDITIONAL INFORMATION ON DRUG (FREE TEXT): R-BAC)
     Dates: start: 20190416, end: 201908
  4. CYTARABINE [Suspect]
     Active Substance: CYTARABINE
     Indication: Mantle cell lymphoma stage IV
     Dosage: AFTER 4TH CYCLE, (ADDITIONAL INFORMATION ON DRUG (FREE TEXT): R-BAC/ ADDITIONAL INFORMATION ON DRUG
     Dates: start: 20190416, end: 201908

REACTIONS (2)
  - Haematotoxicity [Unknown]
  - Off label use [Unknown]

NARRATIVE: CASE EVENT DATE: 20190101
